FAERS Safety Report 10456189 (Version 2)
Quarter: 2014Q3

REPORT INFORMATION
  Report Type: Report from Study
  Country: NO (occurrence: NO)
  Receive Date: 20140916
  Receipt Date: 20140916
  Transmission Date: 20150326
  Serious: Yes (Other)
  Sender: FDA-Public Use
  Company Number: NO-BAYER-2014-127627

PATIENT
  Age: 32 Year
  Sex: Female

DRUGS (1)
  1. MIRENA [Suspect]
     Active Substance: LEVONORGESTREL
     Indication: CONTRACEPTION
     Dosage: 20 MCG/24HR, CONT
     Route: 015
     Dates: end: 20140819

REACTIONS (7)
  - Genital pain [None]
  - Coital bleeding [None]
  - Post procedural discomfort [None]
  - Metrorrhagia [None]
  - Abdominal distension [None]
  - Device dislocation [None]
  - Amenorrhoea [None]

NARRATIVE: CASE EVENT DATE: 2014
